FAERS Safety Report 10085075 (Version 2)
Quarter: 2014Q2

REPORT INFORMATION
  Report Type: Spontaneous
  Country: US (occurrence: US)
  Receive Date: 20140417
  Receipt Date: 20140618
  Transmission Date: 20141212
  Serious: Yes (Other)
  Sender: FDA-Public Use
  Company Number: US-ACORDA-ACO_23728_2010

PATIENT
  Age: 66 Year
  Sex: Female

DRUGS (4)
  1. AMPYRA [Suspect]
     Indication: MULTIPLE SCLEROSIS
     Dosage: 10 MG, BID
     Route: 048
     Dates: start: 20100630, end: 20100630
  2. COPAXONE [Concomitant]
     Dosage: DF
  3. VITAMIN D [Concomitant]
     Dosage: UNK
  4. BACTRIM [Concomitant]
     Dosage: DF

REACTIONS (6)
  - Convulsion [Unknown]
  - Tremor [Recovered/Resolved]
  - Dysstasia [Unknown]
  - Balance disorder [Recovered/Resolved]
  - Hypoaesthesia [Unknown]
  - Hyperhidrosis [Unknown]
